FAERS Safety Report 5360230-1 (Version None)
Quarter: 2007Q2

REPORT INFORMATION
  Report Type: 
  Country: None (occurrence: None)
  Receive Date: 20070618
  Receipt Date: 20070608
  Transmission Date: 20071010
  Serious: Yes (Hospitalization)
  Sender: FDA-Public Use
  Company Number: FR-ELI_LILLY_AND_COMPANY-FR200706002777

PATIENT
  Age: 60 Year
  Sex: Male

DRUGS (5)
  1. ZYPREXA [Suspect]
     Indication: BIPOLAR DISORDER
     Dosage: 20 MG, DAILY (1/D)
     Route: 048
     Dates: start: 20050101, end: 20070301
  2. ZYPREXA [Suspect]
     Dosage: 40 MG, DAILY (1/D)
     Route: 048
     Dates: start: 20070301
  3. DEPAKOTE [Concomitant]
     Indication: BIPOLAR DISORDER
     Route: 048
  4. ATARAX /00058401/ [Concomitant]
     Indication: BIPOLAR DISORDER
     Route: 048
  5. CLOPIXOL /00876701/ [Concomitant]
     Indication: BIPOLAR DISORDER

REACTIONS (4)
  - CARDIAC VALVE DISEASE [None]
  - INTESTINAL INFARCTION [None]
  - PRESCRIBED OVERDOSE [None]
  - PSYCHOSIS POSTOPERATIVE [None]
